FAERS Safety Report 17244204 (Version 1)
Quarter: 2020Q1

REPORT INFORMATION
  Report Type: Spontaneous
  Country: IT (occurrence: IT)
  Receive Date: 20200107
  Receipt Date: 20200107
  Transmission Date: 20200409
  Serious: Yes (Other)
  Sender: FDA-Public Use
  Company Number: IT-BAUSCH-BL-2019-066817

PATIENT
  Age: 64 Year
  Sex: Male

DRUGS (13)
  1. NOVORAPID [Suspect]
     Active Substance: INSULIN ASPART
     Dosage: 22 IU, QD (8 IU LUNCH PLUS 14 IU DINNER)
     Route: 065
     Dates: start: 201902, end: 201906
  2. INSULIN GLARGINE [Suspect]
     Active Substance: INSULIN GLARGINE
     Route: 065
     Dates: start: 201906
  3. NOVORAPID [Suspect]
     Active Substance: INSULIN ASPART
     Dosage: 30 IU, QD (12 IU LUNCH PLUS 18 IU DINNER)
     Route: 065
     Dates: start: 201906
  4. ATORVASTATIN [Concomitant]
     Active Substance: ATORVASTATIN
     Indication: PRODUCT USED FOR UNKNOWN INDICATION
     Route: 065
  5. METFORMIN [Suspect]
     Active Substance: METFORMIN HYDROCHLORIDE
     Indication: TYPE 2 DIABETES MELLITUS
     Route: 065
  6. NOVORAPID [Suspect]
     Active Substance: INSULIN ASPART
     Indication: TYPE 2 DIABETES MELLITUS
     Dosage: 26 IU, QD (10 IU LUNCH PLUS 16 IU DINNER)
     Route: 065
     Dates: end: 201902
  7. METFORMIN [Suspect]
     Active Substance: METFORMIN HYDROCHLORIDE
     Indication: TYPE 2 DIABETES MELLITUS
     Route: 065
  8. NOVORAPID [Suspect]
     Active Substance: INSULIN ASPART
     Dosage: 26 IU, QD (10 IU LUNCH PLUS 16 IU DINNER)
     Route: 065
     Dates: start: 201906
  9. RAMIPRIL. [Concomitant]
     Active Substance: RAMIPRIL
     Indication: PRODUCT USED FOR UNKNOWN INDICATION
     Route: 065
  10. INSULIN GLARGINE [Suspect]
     Active Substance: INSULIN GLARGINE
     Indication: TYPE 2 DIABETES MELLITUS
     Route: 065
  11. INSULIN GLARGINE [Suspect]
     Active Substance: INSULIN GLARGINE
     Route: 065
     Dates: end: 201902
  12. INSULIN GLARGINE [Suspect]
     Active Substance: INSULIN GLARGINE
     Route: 065
     Dates: start: 201902, end: 201906
  13. INSULIN GLARGINE [Suspect]
     Active Substance: INSULIN GLARGINE
     Route: 065

REACTIONS (2)
  - Postprandial hypoglycaemia [Unknown]
  - Hyperglycaemia [Unknown]

NARRATIVE: CASE EVENT DATE: 201902
